FAERS Safety Report 21143764 (Version 2)
Quarter: 2022Q3

REPORT INFORMATION
  Report Type: Report from Study
  Country: US (occurrence: US)
  Receive Date: 20220728
  Receipt Date: 20220912
  Transmission Date: 20221026
  Serious: Yes (Hospitalization, Other)
  Sender: FDA-Public Use
  Company Number: US-TAKEDA-2022TUS049560

PATIENT
  Age: 0 Year
  Sex: Male

DRUGS (12)
  1. VEDOLIZUMAB [Suspect]
     Active Substance: VEDOLIZUMAB
     Indication: Colitis ulcerative
     Dosage: 300 MILLIGRAM
     Route: 065
     Dates: start: 20191215, end: 20201216
  2. APRISO [Concomitant]
     Active Substance: MESALAMINE
     Indication: Colitis ulcerative
     Dosage: 1.5 GRAM, QD
     Route: 048
     Dates: start: 20170701, end: 20200918
  3. CAFFEINE [Concomitant]
     Active Substance: CAFFEINE
     Dosage: UNK
     Route: 048
     Dates: start: 20200930, end: 20201216
  4. CAFFEINE [Concomitant]
     Active Substance: CAFFEINE
     Dosage: UNK UNK, 1/WEEK
     Route: 048
     Dates: start: 20200731, end: 20200929
  5. METAMUCIL [Concomitant]
     Active Substance: PLANTAGO SEED
     Indication: Bowel movement irregularity
     Dosage: UNK
     Route: 048
     Dates: start: 20200922, end: 20200928
  6. SUDAFED [Concomitant]
     Active Substance: PSEUDOEPHEDRINE HYDROCHLORIDE
     Indication: Nasopharyngitis
     Dosage: UNK UNK, TID
     Route: 048
     Dates: start: 20200908, end: 20200911
  7. TETANUS TOXOID, REDUCED DIPHTHERIA TOXOID AND ACELLULAR PERTUSSIS VACC [Concomitant]
     Active Substance: TETANUS TOXOID, REDUCED DIPHTHERIA TOXOID AND ACELLULAR PERTUSSIS VACCINE ADSORBED, TDAP
     Dosage: UNK
     Route: 030
     Dates: start: 20200930, end: 20200930
  8. TYLENOL EXTRA STRENGTH [Concomitant]
     Active Substance: ACETAMINOPHEN
     Indication: Headache
     Dosage: 500 MILLIGRAM
     Route: 048
     Dates: start: 20200317, end: 20201216
  9. VALTREX [Concomitant]
     Active Substance: VALACYCLOVIR HYDROCHLORIDE
     Indication: Herpes virus infection
     Dosage: 500 MILLIGRAM, QD
     Route: 048
     Dates: start: 20200317, end: 20201216
  10. ZYRTEC [Concomitant]
     Active Substance: CETIRIZINE HYDROCHLORIDE
     Indication: Hypersensitivity
     Dosage: 10 MILLIGRAM, QD
     Route: 048
     Dates: start: 20200317, end: 20200417
  11. ZYRTEC [Concomitant]
     Active Substance: CETIRIZINE HYDROCHLORIDE
     Indication: Nasopharyngitis
     Dosage: 10 MILLIGRAM, QD
     Route: 048
     Dates: start: 20200908, end: 20200911
  12. SALINE [Concomitant]
     Active Substance: SODIUM CHLORIDE
     Indication: Nasopharyngitis
     Dosage: UNK UNK, QD
     Route: 045
     Dates: start: 20200908, end: 20200911

REACTIONS (4)
  - Croup infectious [Unknown]
  - Foetal hypokinesia [Unknown]
  - Dyspnoea [Unknown]
  - Foetal exposure during pregnancy [Unknown]

NARRATIVE: CASE EVENT DATE: 20210726
